FAERS Safety Report 14726442 (Version 2)
Quarter: 2018Q2

REPORT INFORMATION
  Report Type: Spontaneous
  Country: GB (occurrence: IE)
  Receive Date: 20180406
  Receipt Date: 20180628
  Transmission Date: 20180711
  Serious: Yes (Life-Threatening, Other)
  Sender: FDA-Public Use
  Company Number: IE-BIOVITRUM-2018IE0328

PATIENT
  Age: 55 Year
  Sex: Male
  Weight: 73.8 kg

DRUGS (5)
  1. WARFARIN [Concomitant]
     Active Substance: WARFARIN
     Indication: AORTIC VALVE REPLACEMENT
     Route: 048
  2. COCODAMOL [Concomitant]
     Active Substance: ACETAMINOPHEN\CODEINE PHOSPHATE
     Indication: ALKAPTONURIA
  3. ORFADIN [Suspect]
     Active Substance: NITISINONE
     Route: 048
  4. ORFADIN [Suspect]
     Active Substance: NITISINONE
     Indication: ALKAPTONURIA
     Route: 048
     Dates: start: 20140604
  5. COCODAMOL [Concomitant]
     Active Substance: ACETAMINOPHEN\CODEINE PHOSPHATE
     Indication: ALKAPTONURIA
     Route: 048

REACTIONS (4)
  - Gastrointestinal haemorrhage [Unknown]
  - Amino acid level increased [Unknown]
  - Keratopathy [Unknown]
  - Gastric cancer [Unknown]

NARRATIVE: CASE EVENT DATE: 201408
